FAERS Safety Report 8326027-5 (Version None)
Quarter: 2012Q2

REPORT INFORMATION
  Report Type: 
  Country: None (occurrence: None)
  Receive Date: 20120501
  Receipt Date: 20120423
  Transmission Date: 20120825
  Serious: Yes (Other)
  Sender: FDA-Public Use
  Company Number: US-CELGENEUS-163-21880-12040862

PATIENT
  Sex: Female

DRUGS (9)
  1. PROTONIX [Concomitant]
     Dosage: 40 MILLIGRAM
     Route: 065
  2. REVLIMID [Suspect]
     Dosage: 10 MILLIGRAM
     Route: 048
     Dates: start: 20120114, end: 20120216
  3. CHLORDIAZEPOXIDE AND AMITRIPTYLINE [Concomitant]
     Route: 065
  4. LISINOPRIL [Concomitant]
     Dosage: 40 MILLIGRAM
     Route: 065
  5. REVLIMID [Suspect]
     Dosage: 10 MILLIGRAM
     Route: 048
     Dates: start: 20111222, end: 20120112
  6. LORAZEPAM [Concomitant]
     Route: 065
  7. HYDROCHLOROTHIAZIDE [Concomitant]
     Route: 065
  8. SYNTHROID [Concomitant]
     Dosage: .112
     Route: 065
  9. RANITIDINE HCL [Concomitant]
     Dosage: 300 MILLIGRAM
     Route: 065

REACTIONS (2)
  - HEPATITIS [None]
  - WHITE BLOOD CELL COUNT DECREASED [None]
